FAERS Safety Report 19265810 (Version 2)
Quarter: 2021Q2

REPORT INFORMATION
  Report Type: Spontaneous
  Country: US (occurrence: US)
  Receive Date: 20210517
  Receipt Date: 20210527
  Transmission Date: 20210717
  Serious: No
  Sender: FDA-Public Use
  Company Number: US-BAYER-2021-141972

PATIENT
  Age: 72 Year
  Sex: Female

DRUGS (1)
  1. ALEVE [Suspect]
     Active Substance: NAPROXEN SODIUM
     Route: 048

REACTIONS (7)
  - Illness [Unknown]
  - Nausea [Unknown]
  - Suspected product quality issue [None]
  - Product barcode issue [Unknown]
  - Dizziness [Unknown]
  - Product label issue [Unknown]
  - Diarrhoea [Unknown]
